FAERS Safety Report 7564057-1 (Version None)
Quarter: 2011Q2

REPORT INFORMATION
  Report Type: 
  Country: None (occurrence: None)
  Receive Date: 20110622
  Receipt Date: 20110615
  Transmission Date: 20111010
  Serious: Yes (Hospitalization)
  Sender: FDA-Public Use
  Company Number: US-B.I. PHARMACEUTICALS,INC./RIDGEFIELD-2011-BP-06889BP

PATIENT
  Sex: Male

DRUGS (10)
  1. TORSEMIDE [Concomitant]
  2. ROPINIROLE HYDROCHLORIDE [Concomitant]
  3. KLOR-CON [Concomitant]
  4. MULTI-VITAMIN [Concomitant]
  5. VITAMIN D [Concomitant]
  6. PRADAXA [Suspect]
     Indication: ATRIAL FIBRILLATION
  7. LIPITOR [Concomitant]
  8. COREG [Concomitant]
  9. COUMADIN [Concomitant]
  10. ASPIRIN [Concomitant]

REACTIONS (4)
  - RASH [None]
  - OEDEMA PERIPHERAL [None]
  - PAIN IN EXTREMITY [None]
  - INFECTION [None]
